FAERS Safety Report 18301636 (Version 2)
Quarter: 2022Q1

REPORT INFORMATION
  Report Type: Spontaneous
  Country: US (occurrence: US)
  Receive Date: 20200923
  Receipt Date: 20220311
  Transmission Date: 20220423
  Serious: Yes (Other)
  Sender: FDA-Public Use
  Company Number: US-GLAXOSMITHKLINE-US2020GSK189279

PATIENT
  Sex: Male
  Weight: 187 kg

DRUGS (2)
  1. ZANTAC [Suspect]
     Active Substance: RANITIDINE HYDROCHLORIDE
     Indication: Product used for unknown indication
     Dosage: UNK
     Route: 048
  2. ZANTAC [Suspect]
     Active Substance: RANITIDINE HYDROCHLORIDE
     Indication: Product used for unknown indication
     Dosage: UNK UNK, WE, AS NEEDED
     Route: 065
     Dates: start: 2012, end: 2017

REACTIONS (18)
  - Transitional cell carcinoma [Unknown]
  - Renal cancer [Unknown]
  - Bladder cancer [Unknown]
  - Acute kidney injury [Recovered/Resolved]
  - Hydronephrosis [Unknown]
  - Chronic kidney disease [Unknown]
  - Renal failure [Unknown]
  - Nephrolithiasis [Unknown]
  - Bladder perforation [Unknown]
  - Bladder cancer [Unknown]
  - Nephrocalcinosis [Unknown]
  - Single functional kidney [Unknown]
  - Haematuria [Unknown]
  - Renal mass [Unknown]
  - Bladder neoplasm [Unknown]
  - Bladder mass [Unknown]
  - Bladder outlet obstruction [Unknown]
  - Diabetic nephropathy [Unknown]
